FAERS Safety Report 10234901 (Version 1)
Quarter: 2014Q2

REPORT INFORMATION
  Report Type: Spontaneous
  Country: TW (occurrence: TW)
  Receive Date: 20140613
  Receipt Date: 20140613
  Transmission Date: 20141212
  Serious: Yes (Other)
  Sender: FDA-Public Use
  Company Number: TW-009507513-1406TWN003925

PATIENT
  Sex: 0

DRUGS (1)
  1. FOSAMAX PLUS TABLETS [Suspect]
     Indication: OSTEOPOROSIS
     Dosage: STRENGTH: 70 MG+2800 IU/TABLET
     Route: 048
     Dates: start: 2007

REACTIONS (1)
  - Femur fracture [Unknown]
